FAERS Safety Report 13837143 (Version 1)
Quarter: 2017Q3

REPORT INFORMATION
  Report Type: Spontaneous
  Country: US (occurrence: US)
  Receive Date: 20170804
  Receipt Date: 20170804
  Transmission Date: 20171127
  Serious: No
  Sender: FDA-Public Use
  Company Number: US-ROCHE-707106

PATIENT
  Age: 77 Year
  Sex: Female
  Weight: 57.2 kg

DRUGS (3)
  1. BONIVA [Suspect]
     Active Substance: IBANDRONATE SODIUM
     Route: 048
     Dates: start: 201003, end: 201005
  2. TIMOPTIC EYE DROPS [Concomitant]
     Route: 065
  3. BONIVA [Suspect]
     Active Substance: IBANDRONATE SODIUM
     Indication: OSTEOPOROSIS
     Route: 048

REACTIONS (3)
  - Visual impairment [Unknown]
  - Nausea [Unknown]
  - Vision blurred [Unknown]

NARRATIVE: CASE EVENT DATE: 201001
